FAERS Safety Report 8216221-6 (Version None)
Quarter: 2012Q1

REPORT INFORMATION
  Report Type: 
  Country: None (occurrence: None)
  Receive Date: 20120316
  Receipt Date: 20120309
  Transmission Date: 20120608
  Serious: Yes (Other)
  Sender: FDA-Public Use
  Company Number: AU-GLAXOSMITHKLINE-B0788570A

PATIENT
  Age: 6 Year
  Sex: Male

DRUGS (2)
  1. FLUTICASONE PROPIONATE/SALMETEROL [Suspect]
     Indication: PRODUCT USED FOR UNKNOWN INDICATION
     Route: 065
  2. FLUTICASONE PROPIONATE [Suspect]
     Indication: ASTHMA
     Route: 065

REACTIONS (4)
  - FEELING ABNORMAL [None]
  - AGGRESSION [None]
  - MOOD ALTERED [None]
  - DEPRESSION [None]
